FAERS Safety Report 7744527-3 (Version None)
Quarter: 2011Q3

REPORT INFORMATION
  Report Type: 
  Country: None (occurrence: None)
  Receive Date: 20110912
  Receipt Date: 20110826
  Transmission Date: 20111222
  Serious: Yes (Hospitalization)
  Sender: FDA-Public Use
  Company Number: NL-BAYER-2011-048771

PATIENT
  Age: 22 Year
  Sex: Female

DRUGS (12)
  1. METHOTREXATE [Suspect]
     Indication: RHEUMATOID ARTHRITIS
     Dosage: UNK UNK, OW
     Route: 048
     Dates: end: 20110527
  2. TOCILIZUMAB [Suspect]
     Indication: RHEUMATOID ARTHRITIS
     Dosage: UNK, Q1MON
     Route: 042
     Dates: start: 20110517
  3. CYMBALTA [Concomitant]
     Dosage: UNK
     Dates: start: 20110301, end: 20110613
  4. LEVOCETIRIZINE DIHYDROCHLORIDE [Concomitant]
     Dosage: UNK
     Dates: start: 20110520
  5. PREDNISOLONE [Concomitant]
     Dosage: 7.5 MG, UNK
     Dates: start: 20110614
  6. CYMBALTA [Concomitant]
  7. NAPROXEN SODIUM [Suspect]
     Indication: ARTHRITIS
     Dosage: 1000 MG, UNK
     Route: 065
     Dates: start: 20110201, end: 20110527
  8. TOCILIZUMAB [Suspect]
     Dosage: UNK, Q1MON
     Route: 042
     Dates: start: 20110517
  9. TOCILIZUMAB [Suspect]
     Dosage: UNK, Q1MON
     Route: 042
     Dates: start: 20110517
  10. PANTOPRAZOLE [Concomitant]
     Dosage: UNK
     Dates: start: 20110401
  11. DULOXETIME HYDROCHLORIDE [Concomitant]
     Dosage: UNK
     Dates: start: 20110301, end: 20110713
  12. TOCILIZUMAB [Suspect]
     Dosage: UNK, Q1MON
     Route: 042
     Dates: start: 20110517

REACTIONS (2)
  - ABDOMINAL PAIN UPPER [None]
  - ILEITIS [None]
